FAERS Safety Report 16087488 (Version 1)
Quarter: 2019Q1

REPORT INFORMATION
  Report Type: Spontaneous
  Country: CY (occurrence: CY)
  Receive Date: 20190319
  Receipt Date: 20190319
  Transmission Date: 20190418
  Serious: No
  Sender: FDA-Public Use
  Company Number: CY-ALKEM LABORATORIES LIMITED-CY-ALKEM-2019-00579

PATIENT
  Age: 45 Year
  Sex: Male

DRUGS (2)
  1. OXALIPLATIN. [Concomitant]
     Active Substance: OXALIPLATIN
     Indication: PRODUCT USED FOR UNKNOWN INDICATION
     Dosage: UNK
     Route: 065
  2. CAPECITABINE. [Suspect]
     Active Substance: CAPECITABINE
     Indication: PRODUCT USED FOR UNKNOWN INDICATION
     Dosage: 67% 2,500 MG/M2/DAY IN TWO DIVIDED DOSES GIVEN ON DAYS 1-14 EVERY 3 WEEKS
     Route: 048

REACTIONS (1)
  - Hypertriglyceridaemia [Unknown]
